FAERS Safety Report 14453351 (Version 1)
Quarter: 2018Q1

REPORT INFORMATION
  Report Type: Spontaneous
  Country: US (occurrence: US)
  Receive Date: 20180127
  Receipt Date: 20180127
  Transmission Date: 20180509
  Serious: Yes (Disabling, Other)
  Sender: FDA-Public Use
  Company Number: None

PATIENT
  Age: 72 Year
  Sex: Female
  Weight: 77.4 kg

DRUGS (15)
  1. SCHIFF MOVE FREE [Concomitant]
     Active Substance: CHONDROITIN SULFATE A\GLUCOSAMINE
  2. TRAZODONE [Concomitant]
     Active Substance: TRAZODONE HYDROCHLORIDE
  3. REMICADE [Suspect]
     Active Substance: INFLIXIMAB
     Indication: PSORIATIC ARTHROPATHY
     Dosage: QUANTITY:5 5;OTHER FREQUENCY:EVERY 8 WEEKS;?
     Route: 042
     Dates: start: 20170118, end: 20171026
  4. MAGNESIUM [Concomitant]
     Active Substance: MAGNESIUM
  5. AZELASTINE HCL [Concomitant]
     Active Substance: AZELASTINE HYDROCHLORIDE
  6. CALCIUM [Concomitant]
     Active Substance: CALCIUM
  7. PREDNISONE. [Concomitant]
     Active Substance: PREDNISONE
  8. GLIPIZIDE. [Concomitant]
     Active Substance: GLIPIZIDE
  9. MORPHINE SULFATE. [Concomitant]
     Active Substance: MORPHINE SULFATE
  10. ACYCLOVIR. [Concomitant]
     Active Substance: ACYCLOVIR
  11. PROBIOTICS [Concomitant]
     Active Substance: PROBIOTICS NOS
  12. ROPINEROLE [Concomitant]
     Active Substance: ROPINIROLE
  13. VITAMIN D3 [Concomitant]
     Active Substance: CHOLECALCIFEROL
  14. METFORMIN [Concomitant]
     Active Substance: METFORMIN HYDROCHLORIDE
  15. OXYBUTINEN [Concomitant]

REACTIONS (6)
  - Hyperhidrosis [None]
  - Impaired work ability [None]
  - Asthenia [None]
  - Blood potassium decreased [None]
  - Chronic fatigue syndrome [None]
  - Malaise [None]

NARRATIVE: CASE EVENT DATE: 20170914
